FAERS Safety Report 8180631-6 (Version None)
Quarter: 2012Q1

REPORT INFORMATION
  Report Type: 
  Country: None (occurrence: None)
  Receive Date: 20120301
  Receipt Date: 20120301
  Transmission Date: 20120608
  Serious: No
  Sender: FDA-Public Use
  Company Number: None

PATIENT
  Age: 60 Year
  Sex: Female
  Weight: 56.6996 kg

DRUGS (2)
  1. VOLTAREN [Suspect]
     Indication: MUSCLE STRAIN
     Dosage: 2 MEASURE STRIPS 2-3 TIMES
     Dates: start: 20120124, end: 20120127
  2. VOLTAREN [Suspect]
     Indication: FLANK PAIN
     Dosage: 2 MEASURE STRIPS 2-3 TIMES
     Dates: start: 20120124, end: 20120127

REACTIONS (1)
  - HERPES ZOSTER [None]
